FAERS Safety Report 20020043 (Version 8)
Quarter: 2023Q1

REPORT INFORMATION
  Report Type: Report from Study
  Country: US (occurrence: US)
  Receive Date: 20211101
  Receipt Date: 20230306
  Transmission Date: 20230417
  Serious: Yes (Other)
  Sender: FDA-Public Use
  Company Number: US-TAKEDA-US202022339

PATIENT
  Age: 63 Year
  Sex: Female

DRUGS (1)
  1. HUMAN IMMUNOGLOBULIN G [Suspect]
     Active Substance: HUMAN IMMUNOGLOBULIN G
     Indication: Primary immunodeficiency syndrome
     Dosage: UNK
     Route: 042

REACTIONS (30)
  - Haematochezia [Unknown]
  - Pneumonia [Unknown]
  - Infusion site discomfort [Unknown]
  - Infusion site swelling [Unknown]
  - Infusion site pain [Unknown]
  - Biopsy vulva abnormal [Unknown]
  - Polyp [Unknown]
  - Endoscopy abnormal [Unknown]
  - Vomiting [Unknown]
  - Dental caries [Unknown]
  - Tooth fracture [Unknown]
  - Vaginal infection [Unknown]
  - Cyst [Unknown]
  - Eye infection [Unknown]
  - Bronchoalveolar lavage [Unknown]
  - Herpes zoster [Recovering/Resolving]
  - Foot fracture [Unknown]
  - Infection [Unknown]
  - Illness [Unknown]
  - Anaemia [Unknown]
  - Infusion site extravasation [Unknown]
  - Pain in extremity [Unknown]
  - Malaise [Unknown]
  - Headache [Unknown]
  - Fatigue [Unknown]
  - Diarrhoea [Unknown]
  - Nausea [Unknown]
  - Pain [Unknown]
  - Incorrect product administration duration [Unknown]
  - Incorrect drug administration rate [Unknown]

NARRATIVE: CASE EVENT DATE: 20200811
